FAERS Safety Report 4956368-0 (Version None)
Quarter: 2006Q1

REPORT INFORMATION
  Report Type: 
  Country: None (occurrence: None)
  Receive Date: 20060323
  Receipt Date: 20060316
  Transmission Date: 20060701
  Serious: Yes (Disabling)
  Sender: FDA-Public Use
  Company Number: 2006036371

PATIENT
  Age: 71 Year
  Sex: Female
  Weight: 75 kg

DRUGS (7)
  1. LIPITOR [Suspect]
     Indication: BLOOD CHOLESTEROL INCREASED
     Dosage: (80 MG,)
     Dates: start: 20050318, end: 20060224
  2. EZETROL (EZETIMIBE) [Suspect]
     Indication: BLOOD CHOLESTEROL INCREASED
     Dosage: (10 MG,), ORAL
     Route: 048
     Dates: start: 20051110, end: 20060126
  3. INNOZIDE (ENALAPRIL MALEATE, HYDROCHLOROTHIAZIDE) [Concomitant]
  4. ADALAT CC [Concomitant]
  5. DOXAZOSIN (DOXAZOSIN) [Concomitant]
  6. VENLAFAXINE HCL [Concomitant]
  7. OMEPRAZOLE [Concomitant]

REACTIONS (3)
  - BLOOD CREATINE PHOSPHOKINASE INCREASED [None]
  - DRUG INTERACTION [None]
  - MYALGIA [None]
